FAERS Safety Report 8997436 (Version 2)
Quarter: 2013Q1

REPORT INFORMATION
  Report Type: Spontaneous
  Country: US (occurrence: US)
  Receive Date: 20130104
  Receipt Date: 20130211
  Transmission Date: 20140127
  Serious: Yes (Hospitalization, Other)
  Sender: FDA-Public Use
  Company Number: CHPA2012US015399

PATIENT
  Sex: Female

DRUGS (3)
  1. HABITROL [Suspect]
     Indication: SMOKING CESSATION THERAPY
     Dosage: 21 MG, QD
     Route: 062
     Dates: start: 20120710
  2. ANTIBIOTICS [Suspect]
     Dosage: UNK, UNK
     Route: 065
  3. DRUG THERAPY NOS [Concomitant]
     Dosage: UNK
     Dates: start: 201208

REACTIONS (11)
  - Renal disorder [Unknown]
  - Bladder disorder [Recovered/Resolved]
  - Dysuria [Recovered/Resolved]
  - Respiratory tract infection [Not Recovered/Not Resolved]
  - Dyspnoea [Not Recovered/Not Resolved]
  - Cough [Not Recovered/Not Resolved]
  - Throat irritation [Not Recovered/Not Resolved]
  - Stress [Unknown]
  - Anxiety [Unknown]
  - Abnormal dreams [Recovered/Resolved]
  - Drug hypersensitivity [Unknown]
